FAERS Safety Report 9741010 (Version 3)
Quarter: 2014Q1

REPORT INFORMATION
  Report Type: Spontaneous
  Country: DE (occurrence: DE)
  Receive Date: 20131209
  Receipt Date: 20140117
  Transmission Date: 20141002
  Serious: Yes (Hospitalization, Disabling, Other)
  Sender: FDA-Public Use
  Company Number: DE-PFIZER INC-2013350416

PATIENT
  Age: 47 Year
  Sex: Female
  Weight: 62 kg

DRUGS (4)
  1. CHAMPIX [Suspect]
     Indication: SMOKING CESSATION THERAPY
     Dosage: 0.5 MG, 1X/DAY
     Route: 048
     Dates: start: 20130523, end: 20130525
  2. CHAMPIX [Suspect]
     Dosage: 0.5 MG, 2X/DAY
     Route: 048
     Dates: start: 20130526, end: 20130529
  3. CHAMPIX [Suspect]
     Dosage: 1 MG, 2X/DAY
     Route: 048
     Dates: start: 20130530, end: 20130610
  4. CHAMPIX [Suspect]
     Dosage: 0.5 MG, 3-2X/DAILY
     Route: 048
     Dates: start: 20130611, end: 20130624

REACTIONS (11)
  - Brain stem infarction [Not Recovered/Not Resolved]
  - Conductive deafness [Not Recovered/Not Resolved]
  - Depression [Not Recovered/Not Resolved]
  - Personality change [Not Recovered/Not Resolved]
  - Phobia [Unknown]
  - Paraesthesia [Unknown]
  - Dizziness [Unknown]
  - Restlessness [Unknown]
  - Nightmare [Unknown]
  - Insomnia [Unknown]
  - Drug intolerance [Unknown]
